FAERS Safety Report 26095255 (Version 1)
Quarter: 2025Q4

REPORT INFORMATION
  Report Type: Report from Study
  Country: ZA (occurrence: ZA)
  Receive Date: 20251127
  Receipt Date: 20251127
  Transmission Date: 20260117
  Serious: Yes (Death)
  Sender: ROCHE
  Company Number: ZA-ROCHE-10000442358

PATIENT
  Sex: Male

DRUGS (1)
  1. VABYSMO [Suspect]
     Active Substance: FARICIMAB-SVOA
     Indication: Macular degeneration
     Dosage: 2ND INJ - 7 JUNE 2024?3RD INJ - 5 JULY 2024?4TH INJ - 13 SEPTEMBER 2024
     Route: 050
     Dates: start: 20240510

REACTIONS (2)
  - Off label use [Unknown]
  - Death [Fatal]
